FAERS Safety Report 11293342 (Version 8)
Quarter: 2018Q4

REPORT INFORMATION
  Report Type: Spontaneous
  Country: PT (occurrence: PT)
  Receive Date: 20150722
  Receipt Date: 20181024
  Transmission Date: 20190204
  Serious: Yes (Other)
  Sender: FDA-Public Use
  Company Number: PT-ASTRAZENECA-2015SE58917

PATIENT
  Age: 67 Year
  Sex: Female

DRUGS (12)
  1. LUTEIN [Concomitant]
     Active Substance: LUTEIN
  2. PROVIDONE [Concomitant]
     Dosage: 50MG/ML
  3. VIARTRIL S [Concomitant]
     Indication: PRODUCT USED FOR UNKNOWN INDICATION
     Route: 048
     Dates: start: 2012
  4. VITAMINS NOS [Concomitant]
     Active Substance: VITAMINS
     Route: 048
  5. OMEGA-3 ACIDS [Concomitant]
     Active Substance: OMEGA-3 FATTY ACIDS
  6. CAPECITABINE. [Concomitant]
     Active Substance: CAPECITABINE
     Indication: LUNG ADENOCARCINOMA
     Route: 065
  7. OCULOTECT [Concomitant]
     Indication: MACULAR DEGENERATION
     Route: 065
  8. IRESSA [Suspect]
     Active Substance: GEFITINIB
     Indication: LUNG ADENOCARCINOMA
     Route: 048
     Dates: start: 20150210
  9. MINERALS NOS [Concomitant]
     Active Substance: MINERALS
  10. ATACAND [Concomitant]
     Active Substance: CANDESARTAN CILEXETIL
     Indication: HYPERTENSION
     Route: 048
     Dates: start: 2012
  11. OMEPRAZOLE. [Concomitant]
     Active Substance: OMEPRAZOLE
     Indication: PRODUCT USED FOR UNKNOWN INDICATION
     Route: 048
  12. VIARTRIL S [Concomitant]
     Indication: OSTEOARTHRITIS
     Route: 048
     Dates: start: 2012

REACTIONS (10)
  - Dry eye [Recovered/Resolved]
  - Growth of eyelashes [Recovered/Resolved]
  - Pyogenic granuloma [Recovered/Resolved]
  - Paronychia [Recovered/Resolved]
  - Nail disorder [Not Recovered/Not Resolved]
  - Hair growth abnormal [Recovered/Resolved]
  - Alopecia [Recovered/Resolved]
  - Dry mouth [Recovered/Resolved]
  - Corneal erosion [Recovered/Resolved]
  - Gingival bleeding [Recovered/Resolved]

NARRATIVE: CASE EVENT DATE: 2015
